FAERS Safety Report 12338862 (Version 9)
Quarter: 2017Q4

REPORT INFORMATION
  Report Type: Report from Study
  Country: US (occurrence: US)
  Receive Date: 20160505
  Receipt Date: 20171113
  Transmission Date: 20180320
  Serious: Yes (Death, Hospitalization)
  Sender: FDA-Public Use
  Company Number: US-ACTELION-A-US2016-131810

PATIENT
  Age: 60 Year
  Sex: Female

DRUGS (40)
  1. ESCITALOPRAM [Concomitant]
     Active Substance: ESCITALOPRAM OXALATE
     Dosage: 20 MG, UNK
     Dates: start: 20170401
  2. POTASSIUM CHLORIDE. [Concomitant]
     Active Substance: POTASSIUM CHLORIDE
     Dosage: 20 MEQ, UNK
     Dates: start: 20170401
  3. MELATONIN [Concomitant]
     Active Substance: MELATONIN
  4. SPIRONOLACTONE. [Concomitant]
     Active Substance: SPIRONOLACTONE
  5. PRILOSEC [Concomitant]
     Active Substance: OMEPRAZOLE MAGNESIUM
  6. BUMETANIDE. [Concomitant]
     Active Substance: BUMETANIDE
     Dosage: 0.5 MG, UNK
  7. PANTOPRAZOLE [Concomitant]
     Active Substance: PANTOPRAZOLE
     Dosage: 40 MG, UNK
     Dates: start: 20170928
  8. LACTULOSE. [Concomitant]
     Active Substance: LACTULOSE
     Dosage: 10 MG/ML
     Dates: start: 20170309
  9. OXYCONTIN [Concomitant]
     Active Substance: OXYCODONE HYDROCHLORIDE
     Dosage: 20 MG, BID
     Dates: start: 20170808
  10. CIPROFLOXACIN. [Concomitant]
     Active Substance: CIPROFLOXACIN
  11. GABAPENTIN. [Concomitant]
     Active Substance: GABAPENTIN
     Dosage: 100 MG, TID
     Dates: start: 20170814
  12. HYDROXYCHLOROQUINE SULFATE. [Concomitant]
     Active Substance: HYDROXYCHLOROQUINE SULFATE
  13. FUROSEMIDE. [Concomitant]
     Active Substance: FUROSEMIDE
  14. THERATEARS [Concomitant]
     Active Substance: CARBOXYMETHYLCELLULOSE SODIUM
  15. LEXAPRO [Concomitant]
     Active Substance: ESCITALOPRAM OXALATE
     Dosage: 5 MG, UNK
  16. SYNTHROID [Concomitant]
     Active Substance: LEVOTHYROXINE SODIUM
     Dosage: 50 MCG, UNK
     Dates: start: 20170317
  17. TIZANIDINE. [Concomitant]
     Active Substance: TIZANIDINE
     Dosage: 4 MG, TID
     Dates: start: 20161004
  18. LEVOTHYROXINE. [Concomitant]
     Active Substance: LEVOTHYROXINE
     Dosage: 25 MCG, UNK
     Dates: start: 20170401
  19. IPRATROPIUM BROMIDE AND ALBUTEROL SULFATE [Concomitant]
     Active Substance: ALBUTEROL SULFATE\IPRATROPIUM BROMIDE
     Dosage: UNK
     Dates: start: 20170703
  20. NORCO [Concomitant]
     Active Substance: ACETAMINOPHEN\HYDROCODONE BITARTRATE
  21. DULERA [Concomitant]
     Active Substance: FORMOTEROL FUMARATE DIHYDRATE\MOMETASONE FUROATE
  22. IRON [Concomitant]
     Active Substance: IRON
     Dosage: 18 MG, UNK
     Dates: start: 20160531
  23. REMODULIN [Concomitant]
     Active Substance: TREPROSTINIL
     Dosage: 1 MG, UNK
     Dates: start: 20170317
  24. HYDROCODONE BITARTRATE AND ACETAMINOPHEN [Concomitant]
     Active Substance: ACETAMINOPHEN\HYDROCODONE BITARTRATE
  25. CENTRUM [Concomitant]
     Active Substance: VITAMINS
  26. LEVOFLOXACIN. [Concomitant]
     Active Substance: LEVOFLOXACIN
     Dosage: 750 MG, UNK
     Dates: start: 20170615
  27. NADOLOL. [Concomitant]
     Active Substance: NADOLOL
  28. ZOLPIDEM TARTATE [Concomitant]
     Active Substance: ZOLPIDEM TARTRATE
     Dosage: UNK UNK, PRN
  29. AMBIEN [Concomitant]
     Active Substance: ZOLPIDEM TARTRATE
  30. ZOLPIDEM [Concomitant]
     Active Substance: ZOLPIDEM\ZOLPIDEM TARTRATE
     Dosage: 10 MG, PRN
     Dates: start: 20160915
  31. OPSUMIT [Suspect]
     Active Substance: MACITENTAN
     Indication: PULMONARY ARTERIAL HYPERTENSION
     Dosage: 10 MG, QD
     Route: 048
     Dates: start: 20160218
  32. OXYCONTIN [Concomitant]
     Active Substance: OXYCODONE HYDROCHLORIDE
     Dosage: 5 - 325
     Dates: start: 20160322
  33. LISINOPRIL. [Concomitant]
     Active Substance: LISINOPRIL
  34. ESCITALOPRAM [Concomitant]
     Active Substance: ESCITALOPRAM OXALATE
     Dosage: 5 MG, UNK
     Dates: start: 20160322
  35. ONDANSETRON [Concomitant]
     Active Substance: ONDANSETRON
     Dosage: 4MG/2ML, INJECTION
     Dates: start: 20160531
  36. PANTOPRAZOLE [Concomitant]
     Active Substance: PANTOPRAZOLE
     Dosage: 20 MG, UNK
     Dates: start: 20170317
  37. MAGNESIUM OXIDE. [Concomitant]
     Active Substance: MAGNESIUM OXIDE
     Dosage: 400 MG, BID
     Dates: start: 20170309
  38. DILTIAZEM. [Concomitant]
     Active Substance: DILTIAZEM
     Dosage: 30 MG, Q8H
     Dates: start: 20170309
  39. HYDROXYZINE HYDROCHLORIDE. [Concomitant]
     Active Substance: HYDROXYZINE HYDROCHLORIDE
     Dosage: 10 MG, PRN
     Dates: start: 20170814
  40. TRAZODONE [Concomitant]
     Active Substance: TRAZODONE HYDROCHLORIDE

REACTIONS (13)
  - Multiple organ dysfunction syndrome [Recovering/Resolving]
  - Malaise [Unknown]
  - Pneumonia [Recovered/Resolved]
  - Drug dose omission [Unknown]
  - Fluid overload [Recovered/Resolved]
  - Confusional state [Unknown]
  - Dyspnoea [Unknown]
  - Fall [Not Recovered/Not Resolved]
  - Epistaxis [Unknown]
  - Sepsis [Fatal]
  - Limb injury [Fatal]
  - Sinus congestion [Unknown]
  - Systemic lupus erythematosus [Unknown]
